FAERS Safety Report 9106382 (Version 1)
Quarter: 2013Q1

REPORT INFORMATION
  Report Type: Spontaneous
  Country: US (occurrence: US)
  Receive Date: 20130221
  Receipt Date: 20130221
  Transmission Date: 20140127
  Serious: No
  Sender: FDA-Public Use
  Company Number: US-PFIZER INC-2013064253

PATIENT
  Age: 67 Year
  Sex: 0

DRUGS (1)
  1. LYRICA [Suspect]
     Dosage: 300, 2 DAILY

REACTIONS (1)
  - Pain [Unknown]
